FAERS Safety Report 5116622-9 (Version None)
Quarter: 2006Q3

REPORT INFORMATION
  Report Type: 
  Country: None (occurrence: None)
  Receive Date: 20060928
  Receipt Date: 20060906
  Transmission Date: 20061208
  Serious: Yes (Other)
  Sender: FDA-Public Use
  Company Number: 2006UW17706

PATIENT
  Sex: Female

DRUGS (1)
  1. XYLOCAINE TOPICAL FILM [Suspect]
     Indication: LOCAL ANAESTHESIA
     Dosage: 2% SINGLE USE, PREFILLED PLASTIC SYRINGE, PRODUCT 063
     Route: 066

REACTIONS (2)
  - FOREIGN BODY TRAUMA [None]
  - PHARMACEUTICAL PRODUCT COMPLAINT [None]
